FAERS Safety Report 14917376 (Version 1)
Quarter: 2018Q2

REPORT INFORMATION
  Report Type: Spontaneous
  Country: US (occurrence: US)
  Receive Date: 20180521
  Receipt Date: 20180521
  Transmission Date: 20180711
  Serious: Yes (Other)
  Sender: FDA-Public Use
  Company Number: US-SUN PHARMACEUTICAL INDUSTRIES LTD-2018US-173298

PATIENT
  Age: 70 Year
  Sex: Male

DRUGS (2)
  1. METHOTREXATE. [Suspect]
     Active Substance: METHOTREXATE
     Indication: DERMATITIS PSORIASIFORM
     Dosage: 20 MG, 1/WEEK
     Route: 065
  2. ACITRETIN. [Concomitant]
     Active Substance: ACITRETIN
     Indication: DERMATITIS PSORIASIFORM
     Dosage: 25 MG, DAILY
     Route: 065

REACTIONS (3)
  - Lymphoproliferative disorder [Recovered/Resolved]
  - B-cell lymphoma [Recovered/Resolved]
  - T-cell lymphoma [Recovered/Resolved]
